FAERS Safety Report 6707942-2 (Version None)
Quarter: 2010Q2

REPORT INFORMATION
  Report Type: 
  Country: None (occurrence: None)
  Receive Date: 20100429
  Receipt Date: 20100413
  Transmission Date: 20101027
  Serious: Yes (Other)
  Sender: FDA-Public Use
  Company Number: 2010SCPR000496

PATIENT
  Age: 80 Year
  Sex: Male

DRUGS (2)
  1. CABERGOLINE [Suspect]
     Indication: PARKINSON'S DISEASE
     Dosage: 1 MG, TID; 0.25 MG, TID
  2. LEVODOPA BENSERAZIDE HYDROCHLO  (BENSERAZIDE HYDROCHLORIDE, LEVODOPA) [Concomitant]

REACTIONS (4)
  - DYSTONIA [None]
  - GASTROINTESTINAL DISORDER [None]
  - INCORRECT DOSE ADMINISTERED [None]
  - TORTICOLLIS [None]
